FAERS Safety Report 23327159 (Version 1)
Quarter: 2023Q4

REPORT INFORMATION
  Report Type: Spontaneous
  Country: IN (occurrence: IN)
  Receive Date: 20231221
  Receipt Date: 20231221
  Transmission Date: 20240110
  Serious: Yes (Other)
  Sender: FDA-Public Use
  Company Number: IN-PFIZER INC-PV202300168033

PATIENT
  Age: 66 Year
  Sex: Female

DRUGS (3)
  1. PALBOCICLIB [Suspect]
     Active Substance: PALBOCICLIB
     Indication: Breast cancer metastatic
     Dosage: 125 MG, CYCLIC (ONCE DAILY, 21 DAYS ON OF A 28-DAY CYCLE)
     Route: 048
     Dates: start: 202307
  2. FULVESTRANT [Concomitant]
     Active Substance: FULVESTRANT
     Dosage: 500 MG, 1X/DAY
     Route: 042
  3. DENOSUMAB [Concomitant]
     Active Substance: DENOSUMAB
     Dosage: 120 MG, 1X/DAY
     Route: 058

REACTIONS (4)
  - Neutropenia [Unknown]
  - Weight increased [Unknown]
  - Rash [Unknown]
  - Constipation [Unknown]

NARRATIVE: CASE EVENT DATE: 20230801
